FAERS Safety Report 9104637 (Version 2)
Quarter: 2013Q2

REPORT INFORMATION
  Report Type: Report from Study
  Country: GB (occurrence: GB)
  Receive Date: 20130220
  Receipt Date: 20130619
  Transmission Date: 20140414
  Serious: Yes (Hospitalization)
  Sender: FDA-Public Use
  Company Number: GB-JNJFOC-20130209296

PATIENT
  Sex: Female

DRUGS (4)
  1. SIMPONI [Suspect]
     Indication: ARTHRITIS
     Route: 065
     Dates: start: 20130124
  2. PREDNISOLONE [Concomitant]
  3. ADCAL D3 [Concomitant]
  4. PENTASA [Concomitant]

REACTIONS (1)
  - Anal abscess [Unknown]
